FAERS Safety Report 10356196 (Version 1)
Quarter: 2014Q3

REPORT INFORMATION
  Report Type: Spontaneous
  Country: US (occurrence: US)
  Receive Date: 20140801
  Receipt Date: 20140801
  Transmission Date: 20150326
  Serious: Yes (Other)
  Sender: FDA-Public Use
  Company Number: US-SUN PHARMACEUTICAL INDUSTRIES LTD-2014SUN01697

PATIENT

DRUGS (2)
  1. DOXORUBICIN HYDROCHLORIDE LIPOSOME INJECTION USP 2MG/ML [Suspect]
     Active Substance: DOXORUBICIN HYDROCHLORIDE
     Indication: OVARIAN EPITHELIAL CANCER
     Dosage: 40 MG/M2, EVERY 4 WEEKS
     Route: 042
  2. BEVACIZUMAB [Concomitant]
     Active Substance: BEVACIZUMAB
     Indication: OVARIAN EPITHELIAL CANCER
     Dosage: 10 MG/KG, EVERY 2 WEEKS
     Route: 042

REACTIONS (1)
  - Lichenoid keratosis [Unknown]
